FAERS Safety Report 25403167 (Version 2)
Quarter: 2025Q3

REPORT INFORMATION
  Report Type: Spontaneous
  Country: US (occurrence: US)
  Receive Date: 20250605
  Receipt Date: 20250901
  Transmission Date: 20251021
  Serious: No
  Sender: SANOFI AVENTIS
  Company Number: US-SA-2025SA158210

PATIENT
  Age: 72 Year
  Sex: Male

DRUGS (1)
  1. DUPIXENT [Suspect]
     Active Substance: DUPILUMAB
     Dosage: 300 MG, QOW
     Route: 058

REACTIONS (7)
  - Sleep disorder [Unknown]
  - Dry skin [Unknown]
  - Skin discolouration [Unknown]
  - Pruritus [Unknown]
  - Pain [Unknown]
  - Pain in extremity [Unknown]
  - Osteoarthritis [Unknown]
